FAERS Safety Report 7650327-5 (Version None)
Quarter: 2011Q3

REPORT INFORMATION
  Report Type: 
  Country: None (occurrence: None)
  Receive Date: 20110802
  Receipt Date: 20110719
  Transmission Date: 20111222
  Serious: Yes (Other)
  Sender: FDA-Public Use
  Company Number: GB-MYLANLABS-2011S1015424

PATIENT
  Age: 27 Year
  Sex: Male

DRUGS (1)
  1. KETAMINE HCL [Suspect]
     Indication: DRUG ABUSE
     Dosage: IN DIVIDED DOSES
     Route: 065

REACTIONS (7)
  - DRUG ABUSE [None]
  - CHOLESTATIC LIVER INJURY [None]
  - HAEMATURIA [None]
  - POLLAKIURIA [None]
  - NOCTURIA [None]
  - BLADDER DISORDER [None]
  - ABDOMINAL PAIN UPPER [None]
